FAERS Safety Report 17178851 (Version 1)
Quarter: 2019Q4

REPORT INFORMATION
  Report Type: Spontaneous
  Country: DE (occurrence: DE)
  Receive Date: 20191219
  Receipt Date: 20191219
  Transmission Date: 20200122
  Serious: Yes (Other)
  Sender: FDA-Public Use
  Company Number: DE-TEVA-2019-DE-1153437

PATIENT
  Age: 59 Year
  Sex: Male
  Weight: 80 kg

DRUGS (1)
  1. SPIRONOLACTON 50 [Suspect]
     Active Substance: SPIRONOLACTONE
     Dosage: 1 DOSAGE FORMS DAILY; 1 DOSAGE FORM PER DAY, 1-0-0

REACTIONS (3)
  - Nipple pain [Not Recovered/Not Resolved]
  - Mastitis [Not Recovered/Not Resolved]
  - Gynaecomastia [Not Recovered/Not Resolved]
